FAERS Safety Report 7215194-2 (Version None)
Quarter: 2011Q1

REPORT INFORMATION
  Report Type: 
  Country: None (occurrence: None)
  Receive Date: 20110107
  Receipt Date: 20101018
  Transmission Date: 20110831
  Serious: No
  Sender: FDA-Public Use
  Company Number: A0887409A

PATIENT
  Sex: Female

DRUGS (3)
  1. LOVAZA [Suspect]
     Dosage: 2CAP TWICE PER DAY
     Route: 048
     Dates: start: 20101011
  2. CALCIUM SUPPLEMENT [Concomitant]
  3. DIOVAN [Concomitant]

REACTIONS (2)
  - ERUCTATION [None]
  - DISCOMFORT [None]
